FAERS Safety Report 7878295-1 (Version None)
Quarter: 2011Q4

REPORT INFORMATION
  Report Type: 
  Country: None (occurrence: None)
  Receive Date: 20111028
  Receipt Date: 20111014
  Transmission Date: 20120403
  Serious: Yes (Life-Threatening, Hospitalization)
  Sender: FDA-Public Use
  Company Number: 2011IT0307

PATIENT
  Age: 11 Year
  Sex: Male

DRUGS (1)
  1. ORFADIN [Suspect]
     Indication: TYROSINAEMIA
     Dosage: 30 MG (30 MG, 1 IN 1 D)
     Dates: start: 20040324

REACTIONS (3)
  - LIVER TRANSPLANT [None]
  - AMINO ACID LEVEL INCREASED [None]
  - HEPATIC NEOPLASM MALIGNANT [None]
